FAERS Safety Report 6224216-7 (Version None)
Quarter: 2009Q2

REPORT INFORMATION
  Report Type: 
  Country: None (occurrence: None)
  Receive Date: 20090612
  Receipt Date: 20090311
  Transmission Date: 20091009
  Serious: No
  Sender: FDA-Public Use
  Company Number: US-ABBOTT-09P-163-0562274-00

PATIENT
  Sex: Female
  Weight: 66.738 kg

DRUGS (11)
  1. HUMIRA [Suspect]
     Indication: RHEUMATOID ARTHRITIS
     Route: 058
     Dates: start: 20081201
  2. HUMIRA [Suspect]
     Route: 058
     Dates: end: 20081201
  3. METHOTREXATE [Concomitant]
     Indication: RHEUMATOID ARTHRITIS
     Dosage: 7 - 2.5 MILLIGRAMS FOR A TOTAL OF 17.5 MG WEEKLY
     Route: 048
  4. PREDNISONE [Concomitant]
     Indication: DRUG USE FOR UNKNOWN INDICATION
     Route: 048
  5. FOLIC ACID [Concomitant]
     Indication: DRUG USE FOR UNKNOWN INDICATION
     Route: 048
  6. CYMBALTA [Concomitant]
     Indication: DRUG USE FOR UNKNOWN INDICATION
     Route: 048
  7. LOTREL [Concomitant]
     Indication: DRUG USE FOR UNKNOWN INDICATION
     Dosage: FORM: 10/40MG
     Route: 048
  8. PLAQUENIL [Concomitant]
     Indication: DRUG USE FOR UNKNOWN INDICATION
     Route: 048
  9. ALEVE [Concomitant]
     Indication: DRUG USE FOR UNKNOWN INDICATION
     Dosage: 4 TO 6 PILLS QD PRN
     Route: 048
  10. ESTRATAB [Concomitant]
     Indication: HORMONE REPLACEMENT THERAPY
     Route: 048
  11. AMBIEN [Concomitant]
     Indication: SLEEP DISORDER THERAPY
     Route: 048

REACTIONS (2)
  - PAIN [None]
  - RHEUMATOID ARTHRITIS [None]
